FAERS Safety Report 5741900-X (Version None)
Quarter: 2008Q2

REPORT INFORMATION
  Report Type: 
  Country: None (occurrence: None)
  Receive Date: 20080514
  Receipt Date: 20080514
  Transmission Date: 20081010
  Serious: Yes (Life-Threatening, Hospitalization)
  Sender: FDA-Public Use
  Company Number: None

PATIENT
  Age: 50 Year
  Sex: Female
  Weight: 107.0489 kg

DRUGS (1)
  1. FOSAMAX [Suspect]
     Indication: OSTEOPENIA
     Dosage: 70 MG  WEEKLY  PO
     Route: 048
     Dates: start: 20070228, end: 20080509

REACTIONS (2)
  - ATRIAL FIBRILLATION [None]
  - RIGHT ATRIAL DILATATION [None]
